FAERS Safety Report 6817926-1 (Version None)
Quarter: 2010Q3

REPORT INFORMATION
  Report Type: 
  Country: None (occurrence: None)
  Receive Date: 20100706
  Receipt Date: 20100630
  Transmission Date: 20110219
  Serious: Yes (Other)
  Sender: FDA-Public Use
  Company Number: US-BAYER-200829320NA

PATIENT
  Age: 56 Year
  Sex: Male
  Weight: 81 kg

DRUGS (19)
  1. MAGNEVIST [Suspect]
     Indication: ARTERIOGRAM CORONARY
  2. OMNISCAN [Suspect]
     Indication: ARTERIOGRAM CORONARY
  3. OPTIMARK [Suspect]
     Indication: ARTERIOGRAM CORONARY
  4. MULTIHANCE [Suspect]
     Indication: ARTERIOGRAM CORONARY
  5. PROHANCE [Suspect]
     Indication: ARTERIOGRAM CORONARY
  6. UNSPECIFIED GADOLINIUM BASED CONTRAST MEDIA [Suspect]
     Indication: NUCLEAR MAGNETIC RESONANCE IMAGING BRAIN
     Dates: start: 20030830, end: 20030830
  7. CELLCEPT [Concomitant]
  8. NEORAL [Concomitant]
  9. ALPRAZOLAM [Concomitant]
  10. ASPIRIN [Concomitant]
  11. HYTRIN [Concomitant]
  12. CELEBREX [Concomitant]
  13. DIOVAN [Concomitant]
  14. AMBIEN [Concomitant]
  15. BENADRYL [Concomitant]
  16. M.V.I. [Concomitant]
  17. CYCLOSPORINE [Concomitant]
  18. OPTIRAY 350 [Concomitant]
     Indication: CATHETERISATION CARDIAC
     Dosage: AS USED: 50 ML
     Dates: start: 20030225, end: 20030225
  19. OPTIRAY 350 [Concomitant]
     Dosage: AS USED: 25 ML
     Dates: start: 20040217, end: 20040217

REACTIONS (16)
  - ANXIETY [None]
  - ARTHRALGIA [None]
  - EMOTIONAL DISTRESS [None]
  - GENERAL PHYSICAL HEALTH DETERIORATION [None]
  - INJURY [None]
  - JOINT STIFFNESS [None]
  - MOBILITY DECREASED [None]
  - MUSCULOSKELETAL STIFFNESS [None]
  - MYALGIA [None]
  - NEPHROGENIC SYSTEMIC FIBROSIS [None]
  - PAIN [None]
  - PAIN OF SKIN [None]
  - RASH MACULAR [None]
  - SKIN DISCOLOURATION [None]
  - SKIN INDURATION [None]
  - SKIN PLAQUE [None]
